FAERS Safety Report 25431682 (Version 1)
Quarter: 2025Q2

REPORT INFORMATION
  Report Type: Spontaneous
  Country: FR (occurrence: FR)
  Receive Date: 20250613
  Receipt Date: 20250613
  Transmission Date: 20250717
  Serious: Yes (Hospitalization)
  Sender: ASCEND THERAPEUTICS US, LLC
  Company Number: FR-Ascend Therapeutics US, LLC-2178534

PATIENT
  Age: 30 Year
  Sex: Male
  Weight: 85 kg

DRUGS (4)
  1. ANDROGEL [Suspect]
     Active Substance: TESTOSTERONE
     Indication: Product use in unapproved indication
     Dates: end: 202503
  2. TESTOSTERONE [Suspect]
     Active Substance: TESTOSTERONE
     Dates: end: 202503
  3. TRENBOLONE ACETATE [Suspect]
     Active Substance: TRENBOLONE ACETATE
     Dates: end: 202503
  4. METHENOLONE ACETATE [Suspect]
     Active Substance: METHENOLONE ACETATE
     Dates: end: 202503

REACTIONS (4)
  - Petechiae [Unknown]
  - Gingival bleeding [Recovered/Resolved]
  - Fibrin D dimer increased [Unknown]
  - Haematuria [Recovered/Resolved]

NARRATIVE: CASE EVENT DATE: 20250401
